FAERS Safety Report 20698917 (Version 1)
Quarter: 2022Q2

REPORT INFORMATION
  Report Type: Other
  Country: CN (occurrence: None)
  Receive Date: 20220412
  Receipt Date: 20220412
  Transmission Date: 20220721
  Serious: Yes (Death)
  Sender: FDA-Public Use
  Company Number: CN-ROCHE-3065669

PATIENT
  Age: 31 Year
  Sex: Female

DRUGS (5)
  1. CAPECITABINE [Suspect]
     Active Substance: CAPECITABINE
     Indication: Signet-ring cell carcinoma
     Dosage: DAYS 1-14, FIRST CYCLE
     Route: 048
     Dates: end: 20200107
  2. OXALIPLATIN [Suspect]
     Active Substance: OXALIPLATIN
     Indication: Signet-ring cell carcinoma
     Dosage: FOR 3 H, DAY 1, FIRST CYCLE
     Route: 042
     Dates: end: 20200107
  3. CETUXIMAB [Suspect]
     Active Substance: CETUXIMAB
     Indication: Signet-ring cell carcinoma
     Route: 065
  4. LEUCOVORIN [Suspect]
     Active Substance: LEUCOVORIN
     Indication: Signet-ring cell carcinoma
     Route: 065
  5. FLUOROURACIL [Suspect]
     Active Substance: FLUOROURACIL
     Indication: Signet-ring cell carcinoma
     Route: 065

REACTIONS (2)
  - Disease progression [Fatal]
  - Neoplasm progression [Fatal]
